FAERS Safety Report 4699140-1 (Version None)
Quarter: 2005Q2

REPORT INFORMATION
  Report Type: 
  Country: None (occurrence: None)
  Receive Date: 20050623
  Receipt Date: 20050623
  Transmission Date: 20051028
  Serious: No
  Sender: FDA-Public Use
  Company Number: None

PATIENT
  Age: 41 Year
  Sex: Female
  Weight: 77.1115 kg

DRUGS (5)
  1. LEVAQUIN [Suspect]
     Indication: EAR INFECTION
     Dosage: 500 MG 10 DAYS, 1000 2 DAYS
     Dates: start: 20041210, end: 20041220
  2. LEVAQUIN [Suspect]
     Indication: SINUSITIS
     Dosage: 500 MG 10 DAYS, 1000 2 DAYS
     Dates: start: 20041210, end: 20041220
  3. LEVAQUIN [Suspect]
     Indication: EAR INFECTION
     Dosage: 500 MG 10 DAYS, 1000 2 DAYS
     Dates: start: 20030102, end: 20050103
  4. LEVAQUIN [Suspect]
     Indication: SINUSITIS
     Dosage: 500 MG 10 DAYS, 1000 2 DAYS
     Dates: start: 20030102, end: 20050103
  5. NASAL STEROIDS [Concomitant]

REACTIONS (6)
  - ABASIA [None]
  - CYST [None]
  - DYSSTASIA [None]
  - INFECTION [None]
  - TENDON DISORDER [None]
  - TENDONITIS [None]
